FAERS Safety Report 7250064-5 (Version None)
Quarter: 2011Q1

REPORT INFORMATION
  Report Type: 
  Country: None (occurrence: None)
  Receive Date: 20110128
  Receipt Date: 20110105
  Transmission Date: 20110831
  Serious: Yes (Other)
  Sender: FDA-Public Use
  Company Number: US-BAYER-2011-001461

PATIENT

DRUGS (10)
  1. ACETYLSALICYLIC ACID SRT [Suspect]
     Dosage: UNK
     Route: 064
  2. ACETAMINOPHEN [Suspect]
     Dosage: UNK MG, UNK
     Route: 064
  3. SALICYLAMIDE [Suspect]
     Route: 064
  4. ACETAMINOPHEN [Suspect]
     Dosage: UNK MG, UNK
     Route: 064
  5. CHLORPHENIRAMINE MALEATE [Suspect]
     Route: 064
  6. CHLORPHENIRAMINE MALEATE [Suspect]
     Route: 064
  7. SALICYLAMIDE [Suspect]
     Route: 064
  8. ACETYLSALICYLIC ACID SRT [Suspect]
     Dosage: UNK
     Route: 064
  9. CAFFEINE [Suspect]
     Route: 064
  10. CAFFEINE [Suspect]
     Route: 064

REACTIONS (2)
  - CLEFT PALATE [None]
  - CLEFT LIP [None]
